FAERS Safety Report 18957102 (Version 1)
Quarter: 2021Q1

REPORT INFORMATION
  Report Type: Spontaneous
  Country: US (occurrence: US)
  Receive Date: 20210301
  Receipt Date: 20210301
  Transmission Date: 20210420
  Serious: Yes (Hospitalization)
  Sender: FDA-Public Use
  Company Number: None

PATIENT
  Age: 88 Year
  Sex: Female

DRUGS (1)
  1. BAMLANIVIMAB. [Suspect]
     Active Substance: BAMLANIVIMAB
     Indication: COVID-19
     Dosage: ?          OTHER FREQUENCY:1 TIME DOSE;?
     Route: 042
     Dates: start: 20210226, end: 20210226

REACTIONS (2)
  - Fall [None]
  - Asthenia [None]

NARRATIVE: CASE EVENT DATE: 20210227
